FAERS Safety Report 17153355 (Version 3)
Quarter: 2021Q2

REPORT INFORMATION
  Report Type: Spontaneous
  Country: DE (occurrence: DE)
  Receive Date: 20191213
  Receipt Date: 20210624
  Transmission Date: 20210716
  Serious: Yes (Other)
  Sender: FDA-Public Use
  Company Number: NVSC2019DE061943

PATIENT
  Age: 62 Year

DRUGS (3)
  1. VARGATEF [Suspect]
     Active Substance: NINTEDANIB
     Dosage: UNK
     Route: 065
     Dates: start: 20190301
  2. DOCETAXEL. [Suspect]
     Active Substance: DOCETAXEL
     Indication: PRODUCT USED FOR UNKNOWN INDICATION
     Dosage: UNK
     Route: 065
  3. VARGATEF [Suspect]
     Active Substance: NINTEDANIB
     Indication: PRODUCT USED FOR UNKNOWN INDICATION
     Dosage: UNK
     Route: 065

REACTIONS (3)
  - Hypertension [Unknown]
  - Diarrhoea [Unknown]
  - Disease progression [Unknown]

NARRATIVE: CASE EVENT DATE: 20200519
